FAERS Safety Report 8335564-9 (Version None)
Quarter: 2012Q2

REPORT INFORMATION
  Report Type: 
  Country: None (occurrence: None)
  Receive Date: 20120503
  Receipt Date: 20120420
  Transmission Date: 20120825
  Serious: Yes (Other)
  Sender: FDA-Public Use
  Company Number: NL-MYLANLABS-2012S1008250

PATIENT
  Age: 12 Year
  Sex: Female
  Weight: 48 kg

DRUGS (2)
  1. PRAVASTATIN [Suspect]
     Indication: HYPERCHOLESTEROLAEMIA
     Dosage: 1DD 20MG
     Route: 048
     Dates: start: 20120319, end: 20120402
  2. MELATONIN [Concomitant]
     Indication: PRODUCT USED FOR UNKNOWN INDICATION
     Dosage: 3 MG
     Route: 048

REACTIONS (2)
  - ANXIETY [None]
  - PSYCHOTIC DISORDER [None]
